FAERS Safety Report 24829427 (Version 3)
Quarter: 2025Q1

REPORT INFORMATION
  Report Type: Report from Study
  Country: US (occurrence: US)
  Receive Date: 20250110
  Receipt Date: 20250218
  Transmission Date: 20250409
  Serious: Yes (Other)
  Sender: UCB
  Company Number: US-UCBSA-2025001217

PATIENT
  Age: 66 Year
  Sex: Female

DRUGS (1)
  1. BIMEKIZUMAB [Suspect]
     Active Substance: BIMEKIZUMAB
     Indication: Psoriasis
     Dosage: 320 MILLIGRAM, EV 8 WEEKS
     Route: 058
     Dates: start: 20241021

REACTIONS (4)
  - Diverticulitis [Recovered/Resolved]
  - Hysterectomy [Recovering/Resolving]
  - Ovarian disorder [Not Recovered/Not Resolved]
  - Uterine disorder [Not Recovered/Not Resolved]

NARRATIVE: CASE EVENT DATE: 20241031
